FAERS Safety Report 21337498 (Version 2)
Quarter: 2023Q1

REPORT INFORMATION
  Report Type: Spontaneous
  Country: US (occurrence: US)
  Receive Date: 20220915
  Receipt Date: 20230209
  Transmission Date: 20230417
  Serious: Yes (Hospitalization, Other)
  Sender: FDA-Public Use
  Company Number: US-PFIZER INC-202201122171

PATIENT
  Age: 32 Year
  Sex: Male

DRUGS (1)
  1. HEPARIN SODIUM [Suspect]
     Active Substance: HEPARIN SODIUM
     Dosage: UNK, DRIP

REACTIONS (4)
  - Haemorrhagic transformation stroke [Recovered/Resolved]
  - Holt-Oram syndrome [Recovered/Resolved]
  - Thrombosis [Recovered/Resolved]
  - Cerebrovascular accident [Recovered/Resolved]
